FAERS Safety Report 7577116-4 (Version None)
Quarter: 2011Q2

REPORT INFORMATION
  Report Type: 
  Country: None (occurrence: None)
  Receive Date: 20110628
  Receipt Date: 20091120
  Transmission Date: 20111010
  Serious: Yes (Other)
  Sender: FDA-Public Use
  Company Number: US-BAYER-200940941NA

PATIENT
  Age: 35 Year
  Sex: Male
  Weight: 88.435 kg

DRUGS (16)
  1. ACETYLSALICYLIC ACID SRT [Concomitant]
     Dosage: 325 MG
     Route: 048
  2. TOPROL-XL [Concomitant]
     Dosage: 10 MG
     Route: 048
  3. PHENYLEPHRINE HCL [Concomitant]
     Dosage: 18.4 MG
     Route: 042
     Dates: start: 19991008, end: 19991008
  4. FRESH FROZEN PLASMA [Concomitant]
     Dosage: 2 U, ONCE
     Route: 042
  5. KERLONE [Concomitant]
     Dosage: 15 MG
     Route: 048
     Dates: start: 19981028
  6. DOPAMINE HCL [Concomitant]
     Dosage: 73656 MICROGRAM
     Route: 042
     Dates: start: 19991008, end: 19991008
  7. NOREPINEPHRINE BITARTRATE [Concomitant]
     Dosage: 1.1 MG
     Route: 042
     Dates: start: 19991008, end: 19991008
  8. PANCURONIUM [Concomitant]
     Dosage: 18 MG
     Route: 042
     Dates: start: 19991008, end: 19991008
  9. PROTAMINE SULFATE [Concomitant]
     Dosage: 210 MG
     Route: 042
     Dates: start: 19991008, end: 19991008
  10. PLATELETS [Concomitant]
     Dosage: 1 U, ONCE
     Route: 042
  11. TRASYLOL [Suspect]
     Indication: PRODUCT USED FOR UNKNOWN INDICATION
     Dosage: 210ML TOTAL INFUSION
     Route: 042
     Dates: start: 19991008, end: 19991008
  12. MILRINONE [Concomitant]
     Dosage: 5.7 MG
     Route: 042
     Dates: start: 19991008, end: 19991008
  13. HEPARIN [Concomitant]
     Dosage: 52000 U
     Route: 042
     Dates: start: 19991008, end: 19991008
  14. ESMOLOL [Concomitant]
     Dosage: 70 MG
     Route: 042
     Dates: start: 19991008, end: 19991008
  15. VANCOMYCIN [Concomitant]
     Dosage: 1GM
     Route: 042
     Dates: start: 19991008, end: 19991008
  16. MIDAZOLAM HCL [Concomitant]
     Dosage: 20 MG
     Route: 042
     Dates: start: 19991008, end: 19991008

REACTIONS (12)
  - RENAL FAILURE [None]
  - ANXIETY [None]
  - PSYCHIATRIC SYMPTOM [None]
  - MULTI-ORGAN FAILURE [None]
  - FEAR [None]
  - PAIN [None]
  - DISABILITY [None]
  - ANHEDONIA [None]
  - DEPRESSION [None]
  - RENAL INJURY [None]
  - INJURY [None]
  - UNEVALUABLE EVENT [None]
